FAERS Safety Report 7616822-X (Version None)
Quarter: 2011Q3

REPORT INFORMATION
  Report Type: 
  Country: None (occurrence: None)
  Receive Date: 20110718
  Receipt Date: 20110706
  Transmission Date: 20111222
  Serious: No
  Sender: FDA-Public Use
  Company Number: US-BIOGENIDEC-2011BI006668

PATIENT
  Age: 54 Year
  Sex: Female

DRUGS (1)
  1. TYSABRI [Suspect]
     Indication: MULTIPLE SCLEROSIS
     Route: 042
     Dates: start: 20100623

REACTIONS (6)
  - BENIGN BREAST NEOPLASM [None]
  - VISUAL IMPAIRMENT [None]
  - FATIGUE [None]
  - MUSCULAR WEAKNESS [None]
  - INTRADUCTAL PAPILLOMA OF BREAST [None]
  - GAIT DISTURBANCE [None]
